FAERS Safety Report 17638715 (Version 1)
Quarter: 2020Q2

REPORT INFORMATION
  Report Type: Spontaneous
  Country: US (occurrence: US)
  Receive Date: 20200407
  Receipt Date: 20200407
  Transmission Date: 20200713
  Serious: No
  Sender: FDA-Public Use
  Company Number: US-SA-2020SA084437

PATIENT
  Age: 73 Year
  Sex: Female

DRUGS (1)
  1. PRALUENT [Suspect]
     Active Substance: ALIROCUMAB
     Indication: BLOOD CHOLESTEROL INCREASED
     Dosage: 75 MG, QOW
     Dates: start: 201911, end: 20200226

REACTIONS (4)
  - Diarrhoea [Unknown]
  - Muscle spasms [Unknown]
  - Pain in extremity [Unknown]
  - Pruritus [Unknown]

NARRATIVE: CASE EVENT DATE: 2020
